FAERS Safety Report 25135046 (Version 1)
Quarter: 2025Q1

REPORT INFORMATION
  Report Type: Spontaneous
  Country: US (occurrence: US)
  Receive Date: 20250328
  Receipt Date: 20250328
  Transmission Date: 20250409
  Serious: No
  Sender: PFIZER
  Company Number: US-PFIZER INC-202500067350

PATIENT
  Age: 74 Year
  Sex: Female

DRUGS (1)
  1. VELSIPITY [Suspect]
     Active Substance: ETRASIMOD ARGININE

REACTIONS (5)
  - Fatigue [Unknown]
  - Drug ineffective [Unknown]
  - Haemorrhage [Unknown]
  - Diarrhoea [Unknown]
  - Flatulence [Unknown]
